FAERS Safety Report 8548599-8 (Version None)
Quarter: 2012Q2

REPORT INFORMATION
  Report Type: 
  Country: None (occurrence: None)
  Receive Date: 20120416
  Receipt Date: 20110614
  Transmission Date: 20120825
  Serious: Yes (Other)
  Sender: FDA-Public Use
  Company Number: PHHY2011US48729

PATIENT
  Age: 80 Year
  Sex: Female
  Weight: 134 kg

DRUGS (5)
  1. SPIRONOLACTONE [Concomitant]
  2. DIGOXIN [Concomitant]
  3. AMIODARONE HYDROCHLORIDE [Concomitant]
  4. DIOVAN [Suspect]
     Dosage: 1 DF, ONE PER DAY ; 1 DF, 80 MG, ONE PER DAY
  5. VITAMIN D [Concomitant]

REACTIONS (2)
  - BLOOD PRESSURE FLUCTUATION [None]
  - DIZZINESS [None]
